FAERS Safety Report 21395821 (Version 1)
Quarter: 2022Q3

REPORT INFORMATION
  Report Type: Spontaneous
  Country: FR (occurrence: None)
  Receive Date: 20220930
  Receipt Date: 20220930
  Transmission Date: 20221027
  Serious: Yes (Other)
  Sender: FDA-Public Use
  Company Number: None

PATIENT
  Age: 47 Year
  Sex: Female
  Weight: 65 kg

DRUGS (6)
  1. MAVENCLAD [Suspect]
     Active Substance: CLADRIBINE
     Indication: Relapsing-remitting multiple sclerosis
     Route: 048
     Dates: start: 20220808, end: 20220815
  2. TRAMADOL HYDROCHLORIDE [Concomitant]
     Active Substance: TRAMADOL HYDROCHLORIDE
     Indication: Product used for unknown indication
  3. RIVOTRIL [Concomitant]
     Active Substance: CLONAZEPAM
     Indication: Product used for unknown indication
  4. DOLIPRANE [Concomitant]
     Active Substance: ACETAMINOPHEN
     Indication: Product used for unknown indication
  5. ACETAMINOPHEN\CODEINE PHOSPHATE [Concomitant]
     Active Substance: ACETAMINOPHEN\CODEINE PHOSPHATE
     Indication: Product used for unknown indication
  6. ESOMEPRAZOLE [Concomitant]
     Active Substance: ESOMEPRAZOLE
     Indication: Product used for unknown indication

REACTIONS (1)
  - Vision blurred [Recovered/Resolved]

NARRATIVE: CASE EVENT DATE: 20220810
